FAERS Safety Report 12162614 (Version 2)
Quarter: 2016Q2

REPORT INFORMATION
  Report Type: Spontaneous
  Country: US (occurrence: US)
  Receive Date: 20160309
  Receipt Date: 20160505
  Transmission Date: 20160815
  Serious: No
  Sender: FDA-Public Use
  Company Number: US-PFIZER INC-2016139511

PATIENT
  Age: 86 Year
  Sex: Male

DRUGS (2)
  1. NEUMEGA [Suspect]
     Active Substance: OPRELVEKIN
     Indication: PLATELET COUNT DECREASED
     Dosage: 3490 UG, UNK
     Dates: start: 20150706, end: 20150710
  2. NEUMEGA [Suspect]
     Active Substance: OPRELVEKIN
     Dosage: 3445 UG, UNK
     Dates: start: 20150623, end: 20150626

REACTIONS (1)
  - Somnolence [Unknown]
